FAERS Safety Report 7336620-4 (Version None)
Quarter: 2011Q1

REPORT INFORMATION
  Report Type: 
  Country: None (occurrence: None)
  Receive Date: 20110307
  Receipt Date: 20110228
  Transmission Date: 20110831
  Serious: Yes (Other)
  Sender: FDA-Public Use
  Company Number: GB-BRISTOL-MYERS SQUIBB COMPANY-14904494

PATIENT
  Age: 17 Year
  Sex: Male

DRUGS (21)
  1. VINCRISTINE SULFATE [Suspect]
     Indication: IMMUNOSUPPRESSION
     Dosage: CUMULATIVE DOSE 6 MG/M2
     Route: 065
  2. MERCAPTOPURINE [Suspect]
     Indication: BURKITT'S LYMPHOMA
     Dosage: CUMULATIVE DOSE 4 MG/M2
     Route: 065
  3. VINCRISTINE SULFATE [Suspect]
     Indication: BURKITT'S LYMPHOMA
     Dosage: CUMULATIVE DOSE 6 MG/M2
     Route: 065
  4. THIOGUANINE [Suspect]
     Indication: BURKITT'S LYMPHOMA
     Route: 065
  5. DEXRAZOXANE HYDROCHLORIDE [Suspect]
     Route: 065
  6. ITRACONAZOLE [Suspect]
     Indication: PROPHYLAXIS
     Route: 065
  7. ACYCLOVIR [Suspect]
     Indication: PROPHYLAXIS
     Route: 065
  8. PREDNISOLONE [Suspect]
     Indication: BURKITT'S LYMPHOMA
     Dosage: 1 DF: 2 G/M2
     Route: 065
  9. ONCOVIN [Suspect]
     Indication: BURKITT'S LYMPHOMA
  10. CAELYX [Suspect]
     Indication: BURKITT'S LYMPHOMA
     Dosage: LIPOSOME INJ 2CYCLES.CUMULATIVE DOSE 200MG/M2;PER 1 DAY
     Route: 044
  11. METHOTREXATE [Suspect]
     Indication: BURKITT'S LYMPHOMA
     Dosage: 1 DF: 4 G/M2,TOTAL 6 CYCLES
     Route: 037
  12. RITUXIMAB [Suspect]
     Indication: BURKITT'S LYMPHOMA
     Dosage: 375MG/M2,CUMULATIVE DOSE 1500 MG,RECEIVED 3 CYCLE
     Route: 065
  13. CYCLOPHOSPHAMIDE [Suspect]
     Indication: IMMUNOSUPPRESSION
     Dosage: DURING CHEMOTHERAPY DOSE WAS 4-5 MICROGRAM/LITER; UNKNOWN/D CUMULATIVE DOSE 1500 MG; UNKNOWN/D
  14. COTRIM [Suspect]
     Indication: PROPHYLAXIS
     Route: 065
  15. ARA-C [Suspect]
     Indication: BURKITT'S LYMPHOMA
     Route: 065
  16. CYCLOPHOSPHAMIDE [Suspect]
     Indication: BURKITT'S LYMPHOMA
     Dosage: DURING CHEMOTHERAPY DOSE WAS 4-5 MICROGRAM/LITER; UNKNOWN/D CUMULATIVE DOSE 1500 MG; UNKNOWN/D
  17. CYCLOPHOSPHAMIDE [Suspect]
     Indication: ILL-DEFINED DISORDER
     Dosage: DURING CHEMOTHERAPY DOSE WAS 4-5 MICROGRAM/LITER; UNKNOWN/D CUMULATIVE DOSE 1500 MG; UNKNOWN/D
  18. CYCLOPHOSPHAMIDE [Suspect]
     Indication: PROPHYLAXIS
     Dosage: DURING CHEMOTHERAPY DOSE WAS 4-5 MICROGRAM/LITER; UNKNOWN/D CUMULATIVE DOSE 1500 MG; UNKNOWN/D
  19. VP-16 [Suspect]
     Indication: BURKITT'S LYMPHOMA
     Dosage: CUMULATIVE DOSE 400MG/M2
     Route: 065
  20. TACROLIMUS [Suspect]
     Indication: IMMUNOSUPPRESSION
     Dosage: 1 DF: 4-5 MICROGRAM/LITER
     Route: 065
  21. PREDNISONE [Suspect]
     Dosage: 1DOSAGEFORM=2G/M2,
     Route: 065

REACTIONS (2)
  - RENAL IMPAIRMENT [None]
  - NEUTROPENIA [None]
